FAERS Safety Report 5629053-X (Version None)
Quarter: 2008Q1

REPORT INFORMATION
  Report Type: 
  Country: None (occurrence: None)
  Receive Date: 20080216
  Receipt Date: 20071218
  Transmission Date: 20080703
  Serious: Yes (Other)
  Sender: FDA-Public Use
  Company Number: US-PURDUE-USA_2007_0028364

PATIENT
  Sex: Male

DRUGS (1)
  1. OXYCONTIN [Suspect]
     Indication: ARTHRITIS
     Dosage: UNK MG, UNK
     Route: 048
     Dates: start: 20000910, end: 20010711

REACTIONS (5)
  - APPENDICITIS [None]
  - DIZZINESS [None]
  - DRUG DEPENDENCE [None]
  - IMPAIRED DRIVING ABILITY [None]
  - UNEVALUABLE EVENT [None]
